FAERS Safety Report 8707393 (Version 2)
Quarter: 2012Q4

REPORT INFORMATION
  Report Type: 
  Country: US (occurrence: US)
  Receive Date: 20120803
  Receipt Date: 20120919
  Transmission Date: 20130627
  Serious: No
  Sender: FDA-Public Use
  Company Number: US-ASTRAZENECA-2012SE51785

PATIENT
  Age: 51 Year
  Sex: Male
  Weight: 79.4 kg

DRUGS (12)
  1. NEXIUM [Suspect]
     Indication: GASTROOESOPHAGEAL REFLUX DISEASE
     Route: 048
     Dates: start: 2010, end: 201204
  2. NEXIUM [Suspect]
     Indication: EROSIVE OESOPHAGITIS
     Route: 048
     Dates: start: 2010, end: 201204
  3. NEXIUM [Suspect]
     Indication: ACQUIRED OESOPHAGEAL WEB
     Route: 048
     Dates: start: 2010, end: 201204
  4. NEXIUM [Suspect]
     Indication: GASTROOESOPHAGEAL REFLUX DISEASE
     Route: 048
     Dates: start: 201204, end: 201205
  5. NEXIUM [Suspect]
     Indication: EROSIVE OESOPHAGITIS
     Route: 048
     Dates: start: 201204, end: 201205
  6. NEXIUM [Suspect]
     Indication: ACQUIRED OESOPHAGEAL WEB
     Route: 048
     Dates: start: 201204, end: 201205
  7. NEXIUM [Suspect]
     Indication: GASTROOESOPHAGEAL REFLUX DISEASE
     Route: 048
     Dates: start: 201205
  8. NEXIUM [Suspect]
     Indication: EROSIVE OESOPHAGITIS
     Route: 048
     Dates: start: 201205
  9. NEXIUM [Suspect]
     Indication: ACQUIRED OESOPHAGEAL WEB
     Route: 048
     Dates: start: 201205
  10. ZOLOFT [Concomitant]
     Indication: DEPRESSION
  11. CLARITIN [Concomitant]
     Indication: SEASONAL ALLERGY
  12. SIMVASTATIN [Concomitant]
     Indication: BLOOD CHOLESTEROL INCREASED

REACTIONS (12)
  - Diverticulitis [Unknown]
  - Dysphagia [Unknown]
  - Erosive oesophagitis [Unknown]
  - Dyspepsia [Unknown]
  - Odynophagia [Unknown]
  - Acquired oesophageal web [Unknown]
  - Hypersensitivity [Unknown]
  - Insomnia [Unknown]
  - Chest pain [Unknown]
  - Rash [Unknown]
  - Drug dose omission [Unknown]
  - Off label use [Unknown]
